FAERS Safety Report 13275124 (Version 2)
Quarter: 2017Q1

REPORT INFORMATION
  Report Type: Report from Study
  Country: AU (occurrence: AU)
  Receive Date: 20170227
  Receipt Date: 20170303
  Transmission Date: 20170428
  Serious: Yes (Hospitalization)
  Sender: FDA-Public Use
  Company Number: AU-BIOGEN-2017BI00339644

PATIENT
  Age: 14 Year
  Sex: Male

DRUGS (5)
  1. PLEGRIDY [Suspect]
     Active Substance: PEGINTERFERON BETA-1A
     Route: 058
     Dates: start: 20161229
  2. PLEGRIDY [Suspect]
     Active Substance: PEGINTERFERON BETA-1A
     Indication: MULTIPLE SCLEROSIS
     Route: 058
     Dates: start: 20161222
  3. PLEGRIDY [Suspect]
     Active Substance: PEGINTERFERON BETA-1A
     Route: 058
     Dates: start: 20170119, end: 20170216
  4. PLEGRIDY [Suspect]
     Active Substance: PEGINTERFERON BETA-1A
     Route: 058
     Dates: start: 20170105
  5. PLEGRIDY [Suspect]
     Active Substance: PEGINTERFERON BETA-1A
     Route: 058

REACTIONS (13)
  - Malaise [Unknown]
  - Hypoaesthesia [Not Recovered/Not Resolved]
  - Abdominal pain [Not Recovered/Not Resolved]
  - Multiple sclerosis [Not Recovered/Not Resolved]
  - Nausea [Not Recovered/Not Resolved]
  - Drug administered to patient of inappropriate age [Not Recovered/Not Resolved]
  - Influenza like illness [Not Recovered/Not Resolved]
  - Paraesthesia [Not Recovered/Not Resolved]
  - Chills [Unknown]
  - Muscular weakness [Not Recovered/Not Resolved]
  - Abdominal discomfort [Recovered/Resolved]
  - Faecaloma [Unknown]
  - Pain [Not Recovered/Not Resolved]

NARRATIVE: CASE EVENT DATE: 20170108
